FAERS Safety Report 9357709 (Version 1)
Quarter: 2013Q2

REPORT INFORMATION
  Report Type: Spontaneous
  Country: US (occurrence: US)
  Receive Date: 20130620
  Receipt Date: 20130620
  Transmission Date: 20140414
  Serious: Yes (Hospitalization, Other)
  Sender: FDA-Public Use
  Company Number: US-TEVA-413841USA

PATIENT
  Age: 45 Year
  Sex: Female

DRUGS (8)
  1. COPAXONE [Suspect]
     Indication: MULTIPLE SCLEROSIS
     Route: 058
  2. LISINOPRIL [Concomitant]
     Indication: HYPERTENSION
     Dosage: 30 MILLIGRAM DAILY;
     Route: 048
  3. ZANAFLEX [Concomitant]
     Indication: MUSCLE RELAXANT THERAPY
     Dosage: 24 MILLIGRAM DAILY;
     Route: 048
     Dates: start: 2011
  4. PROTONIX [Concomitant]
     Indication: GASTROOESOPHAGEAL REFLUX DISEASE
     Dosage: 40 MILLIGRAM DAILY;
     Route: 048
  5. VITAMIN D3 [Concomitant]
  6. PLAQUENIL [Concomitant]
     Indication: INFLAMMATION
     Dosage: 400 MILLIGRAM DAILY;
     Route: 048
  7. TRAMADOL [Concomitant]
     Indication: PAIN
  8. PREDNISONE [Concomitant]

REACTIONS (10)
  - Oxygen saturation abnormal [Unknown]
  - Dyspnoea [Unknown]
  - Nausea [Recovering/Resolving]
  - Back pain [Recovering/Resolving]
  - Palpitations [Recovering/Resolving]
  - Chills [Recovering/Resolving]
  - Cold sweat [Recovering/Resolving]
  - Feeling cold [Recovering/Resolving]
  - Fatigue [Unknown]
  - Asthenia [Unknown]
